FAERS Safety Report 16306217 (Version 2)
Quarter: 2019Q2

REPORT INFORMATION
  Report Type: Spontaneous
  Country: US (occurrence: US)
  Receive Date: 20190513
  Receipt Date: 20190529
  Transmission Date: 20190711
  Serious: Yes (Hospitalization)
  Sender: FDA-Public Use
  Company Number: US-SMITH AND NEPHEW, INC-2019SMT00036

PATIENT
  Age: 84 Year
  Sex: Male
  Weight: 90.7 kg

DRUGS (7)
  1. OVER A DOZEN UNSPECIFIED MEDICATIONS FOR THE HEART AND DIABETES [Concomitant]
  2. REGRANEX [Suspect]
     Active Substance: BECAPLERMIN
     Indication: WOUND
     Dosage: APPLY A THIN LAYER TO AFFECTED AREA, 1X/DAY, 12 HOURS ON AND 12 HOURS OFF
     Route: 061
     Dates: start: 201904, end: 201904
  3. ^SILVER SOMETHING^ [Concomitant]
  4. JANUMET [Concomitant]
     Active Substance: METFORMIN HYDROCHLORIDE\SITAGLIPTIN PHOSPHATE
  5. VYTORIN [Concomitant]
     Active Substance: EZETIMIBE\SIMVASTATIN
  6. A VARIETY OF TOPICAL ANTIBIOTICS [Concomitant]
  7. REGRANEX [Suspect]
     Active Substance: BECAPLERMIN
     Dosage: UNK UNK, EVERY 48 HOURS WITYH DRESSING CHANGES
     Route: 061
     Dates: start: 20190501

REACTIONS (2)
  - Cellulitis [Recovered/Resolved]
  - Off label use [Recovered/Resolved]

NARRATIVE: CASE EVENT DATE: 201904
